FAERS Safety Report 7250190-0 (Version None)
Quarter: 2011Q1

REPORT INFORMATION
  Report Type: 
  Country: None (occurrence: None)
  Receive Date: 20110128
  Receipt Date: 20110119
  Transmission Date: 20110831
  Serious: Yes (Other)
  Sender: FDA-Public Use
  Company Number: AU-BAYER-2010-002551

PATIENT
  Age: 84 Year
  Sex: Female

DRUGS (7)
  1. ASPIRIN [Concomitant]
     Dosage: 100 MG, QD
     Route: 048
  2. CLEXANE [Concomitant]
     Dosage: 40 MG, UNK
     Route: 058
  3. CIPROXIN IV [Suspect]
     Dosage: UNK
     Dates: start: 20101101
  4. MOXIFLOXACIN [Concomitant]
     Dosage: 400 MG, QD
     Route: 048
  5. ATORVASTATIN [Concomitant]
     Dosage: 40 MG, QD
     Route: 048
  6. PANTOPRAZOLE [Concomitant]
     Dosage: 40 MG, QD
     Route: 048
  7. ULTRAVIST 150 [Suspect]
     Indication: COMPUTERISED TOMOGRAM
     Dosage: 100 ML, ONCE
     Route: 042
     Dates: start: 20101119, end: 20101119

REACTIONS (4)
  - DRUG ERUPTION [None]
  - LOSS OF CONSCIOUSNESS [None]
  - DYSKINESIA [None]
  - FLUSHING [None]
